FAERS Safety Report 10801172 (Version 3)
Quarter: 2015Q2

REPORT INFORMATION
  Report Type: Report from Study
  Country: BR (occurrence: BR)
  Receive Date: 20150217
  Receipt Date: 20150402
  Transmission Date: 20150821
  Serious: Yes (Hospitalization, Other)
  Sender: FDA-Public Use
  Company Number: BR-ROCHE-1539041

PATIENT
  Age: 61 Year
  Sex: Female
  Weight: 80 kg

DRUGS (7)
  1. ACTEMRA [Suspect]
     Active Substance: TOCILIZUMAB
     Route: 042
     Dates: start: 201407, end: 201502
  2. ACTEMRA [Suspect]
     Active Substance: TOCILIZUMAB
     Indication: RHEUMATOID ARTHRITIS
     Route: 042
     Dates: start: 201403, end: 201405
  3. PARACETAMOL [Concomitant]
     Active Substance: ACETAMINOPHEN
  4. CLONAZEPAM. [Concomitant]
     Active Substance: CLONAZEPAM
  5. ATENOLOL. [Concomitant]
     Active Substance: ATENOLOL
  6. PANTOPRAZOLE [Concomitant]
     Active Substance: PANTOPRAZOLE SODIUM
  7. MIOSAN [Concomitant]
     Active Substance: CYCLOBENZAPRINE

REACTIONS (4)
  - Seizure [Recovered/Resolved]
  - Memory impairment [Unknown]
  - Gastroenteritis [Recovered/Resolved]
  - Electrolyte imbalance [Recovered/Resolved]

NARRATIVE: CASE EVENT DATE: 201503
